FAERS Safety Report 21650524 (Version 6)
Quarter: 2023Q1

REPORT INFORMATION
  Report Type: Report from Study
  Country: US (occurrence: US)
  Receive Date: 20221128
  Receipt Date: 20230203
  Transmission Date: 20230417
  Serious: Yes (Other)
  Sender: FDA-Public Use
  Company Number: US-PFIZER INC-202201325969

PATIENT

DRUGS (5)
  1. DEXTRAN [Suspect]
     Active Substance: DEXTRAN
     Indication: Urea renal clearance
     Dosage: 1.5ML/KG
     Route: 040
     Dates: start: 202202, end: 2022
  2. IOHEXOL [Suspect]
     Active Substance: IOHEXOL
     Dosage: BOLUS= 36 MG/KG/DOSE
     Route: 040
     Dates: start: 202202
  3. IOHEXOL [Suspect]
     Active Substance: IOHEXOL
     Dosage: INFUSION= 15MG/MIN OVER 180 MIN; 50 ML SYRINGE INFUSED AT 13.91 ML/HR
     Dates: start: 202202
  4. AMINOHIPPURATE SODIUM [Suspect]
     Active Substance: AMINOHIPPURATE SODIUM
     Indication: Urea renal clearance
     Dosage: INFUSION: 2400 MG IN NS (SODIUM CHLORIDE 0.9%) 50 ML
     Dates: start: 202202
  5. AMINOHIPPURATE SODIUM [Suspect]
     Active Substance: AMINOHIPPURATE SODIUM
     Dosage: BOLUS: PAH CONC: 200MG/ML (KG/75)*4.2= ML OF PAH TO BE ADMINISTERED AS A BOLUS OVER 5 MIN.
     Route: 040
     Dates: start: 202202

REACTIONS (1)
  - Hypersensitivity [Recovered/Resolved]

NARRATIVE: CASE EVENT DATE: 20221121
